FAERS Safety Report 24147440 (Version 1)
Quarter: 2024Q3

REPORT INFORMATION
  Report Type: Spontaneous
  Country: CN (occurrence: CN)
  Receive Date: 20240729
  Receipt Date: 20240729
  Transmission Date: 20241017
  Serious: Yes (Hospitalization, Disabling)
  Sender: PFIZER
  Company Number: CN-PFIZER INC-PV202400097487

PATIENT
  Age: 21 Year
  Sex: Female
  Weight: 55 kg

DRUGS (15)
  1. MEDROL [Suspect]
     Active Substance: METHYLPREDNISOLONE
     Indication: Encephalopathy
     Dosage: 40 MG, 1X/DAY
     Route: 048
     Dates: start: 20221116, end: 20221128
  2. MEDROL [Suspect]
     Active Substance: METHYLPREDNISOLONE
     Indication: Blood disorder
  3. MEDROL [Suspect]
     Active Substance: METHYLPREDNISOLONE
     Indication: Lupus nephritis
  4. MEDROL [Suspect]
     Active Substance: METHYLPREDNISOLONE
     Indication: Pericarditis lupus
  5. METHYLPREDNISOLONE SODIUM SUCCINATE [Suspect]
     Active Substance: METHYLPREDNISOLONE SODIUM SUCCINATE
     Indication: Encephalopathy
     Dosage: 40 MG, 1X/DAY
     Route: 041
     Dates: start: 20221026, end: 20221029
  6. METHYLPREDNISOLONE SODIUM SUCCINATE [Suspect]
     Active Substance: METHYLPREDNISOLONE SODIUM SUCCINATE
     Indication: Blood disorder
     Dosage: 60 MG, 1X/DAY
     Route: 041
     Dates: start: 20221030, end: 20221102
  7. METHYLPREDNISOLONE SODIUM SUCCINATE [Suspect]
     Active Substance: METHYLPREDNISOLONE SODIUM SUCCINATE
     Indication: Lupus nephritis
     Dosage: 500 MG, 1X/DAY
     Route: 041
     Dates: start: 20221103, end: 20221105
  8. METHYLPREDNISOLONE SODIUM SUCCINATE [Suspect]
     Active Substance: METHYLPREDNISOLONE SODIUM SUCCINATE
     Indication: Pericarditis lupus
     Dosage: 120 MG, 1X/DAY
     Route: 041
     Dates: start: 20221105, end: 20221107
  9. METHYLPREDNISOLONE SODIUM SUCCINATE [Suspect]
     Active Substance: METHYLPREDNISOLONE SODIUM SUCCINATE
     Indication: Full blood count decreased
     Dosage: 80 MG, 1X/DAY
     Route: 041
     Dates: start: 20221108, end: 20221112
  10. METHYLPREDNISOLONE SODIUM SUCCINATE [Suspect]
     Active Substance: METHYLPREDNISOLONE SODIUM SUCCINATE
     Dosage: 60 MG, 1X/DAY
     Route: 041
     Dates: start: 20221113, end: 20221115
  11. METHYLPREDNISOLONE [Suspect]
     Active Substance: METHYLPREDNISOLONE
     Indication: Encephalopathy
     Dosage: 4 MG, 1X/DAY
     Route: 048
     Dates: start: 20230808, end: 20240629
  12. METHYLPREDNISOLONE [Suspect]
     Active Substance: METHYLPREDNISOLONE
     Indication: Blood disorder
  13. METHYLPREDNISOLONE [Suspect]
     Active Substance: METHYLPREDNISOLONE
     Indication: Lupus nephritis
  14. METHYLPREDNISOLONE [Suspect]
     Active Substance: METHYLPREDNISOLONE
     Indication: Pericarditis lupus
  15. METHYLPREDNISOLONE [Suspect]
     Active Substance: METHYLPREDNISOLONE
     Indication: Full blood count decreased

REACTIONS (1)
  - Osteonecrosis [Recovered/Resolved with Sequelae]

NARRATIVE: CASE EVENT DATE: 20240119
